FAERS Safety Report 5416910-2 (Version None)
Quarter: 2007Q3

REPORT INFORMATION
  Report Type: 
  Country: None (occurrence: None)
  Receive Date: 20070718
  Receipt Date: 20060622
  Transmission Date: 20080115
  Serious: Yes (Hospitalization, Other)
  Sender: FDA-Public Use
  Company Number: 2006057915

PATIENT
  Age: 57 Year
  Sex: Male
  Weight: 117.9352 kg

DRUGS (2)
  1. CELEBREX [Suspect]
     Indication: ANKYLOSING SPONDYLITIS
     Dosage: (200 MG)
     Dates: start: 20010425, end: 20040609
  2. BEXTRA [Suspect]
     Indication: ANKYLOSING SPONDYLITIS
     Dosage: 40 MG (20 MG, 2 IN 1 )
     Dates: start: 20030101

REACTIONS (2)
  - MYOCARDIAL INFARCTION [None]
  - STOMACH DISCOMFORT [None]
